FAERS Safety Report 9821057 (Version 1)
Quarter: 2014Q1

REPORT INFORMATION
  Report Type: Spontaneous
  Country: US (occurrence: None)
  Receive Date: 20140115
  Receipt Date: 20140115
  Transmission Date: 20141002
  Serious: No
  Sender: FDA-Public Use
  Company Number: None

PATIENT
  Age: 71 Year
  Sex: Female
  Weight: 75.5 kg

DRUGS (2)
  1. ONDANSETRON [Suspect]
     Indication: GLIOBLASTOMA
     Route: 048
     Dates: start: 20131216, end: 20140102
  2. TEMOZOLOMIDE [Concomitant]

REACTIONS (3)
  - Rash generalised [None]
  - Pruritus [None]
  - Rash erythematous [None]
